FAERS Safety Report 4845806-X (Version None)
Quarter: 2005Q4

REPORT INFORMATION
  Report Type: 
  Country: None (occurrence: None)
  Receive Date: 20051206
  Receipt Date: 20051027
  Transmission Date: 20060501
  Serious: Yes (Other)
  Sender: FDA-Public Use
  Company Number: 2005CG01792

PATIENT
  Age: 58 Year
  Sex: Male
  Weight: 70 kg

DRUGS (4)
  1. TENORMIN [Suspect]
     Indication: MYOCARDIAL INFARCTION
     Route: 048
     Dates: start: 19990101, end: 20050201
  2. TENORMIN [Suspect]
     Route: 048
     Dates: start: 20050201
  3. KARDEGIC [Concomitant]
  4. ZOCOR [Concomitant]
     Route: 048

REACTIONS (2)
  - MUSCLE FATIGUE [None]
  - SOMNOLENCE [None]
